FAERS Safety Report 16721237 (Version 7)
Quarter: 2020Q1

REPORT INFORMATION
  Report Type: Spontaneous
  Country: US (occurrence: US)
  Receive Date: 20190820
  Receipt Date: 20200319
  Transmission Date: 20200409
  Serious: Yes (Other)
  Sender: FDA-Public Use
  Company Number: US-SHIRE-US201926931

PATIENT
  Sex: Female

DRUGS (1)
  1. GATTEX [Suspect]
     Active Substance: TEDUGLUTIDE\WATER
     Indication: SHORT-BOWEL SYNDROME
     Dosage: 0.230 UNIT UNKNOWN, 1X/DAY:QD
     Route: 058
     Dates: start: 20190412

REACTIONS (3)
  - Device related thrombosis [Unknown]
  - Electrolyte imbalance [Unknown]
  - Unevaluable event [Unknown]
